FAERS Safety Report 4382424-4 (Version None)
Quarter: 2004Q2

REPORT INFORMATION
  Report Type: 
  Country: None (occurrence: None)
  Receive Date: 20040617
  Receipt Date: 20040602
  Transmission Date: 20050107
  Serious: Yes (Hospitalization)
  Sender: FDA-Public Use
  Company Number: WAES 0310USA02446

PATIENT
  Age: 74 Year
  Sex: Female

DRUGS (6)
  1. ZOCOR [Suspect]
     Indication: HYPERLIPIDAEMIA
     Dosage: 5 MG/DAILY PO
     Route: 048
     Dates: start: 19920514, end: 19970210
  2. ZOCOR [Suspect]
     Indication: HYPERLIPIDAEMIA
     Dosage: 5 MG/DAILY PO
     Route: 048
     Dates: start: 19971117, end: 20001218
  3. IFENPRODIL TARTRATE [Concomitant]
  4. MECOBALAMIN [Concomitant]
  5. NIFEDIPINE [Concomitant]
  6. TICLOPIDINE HYDROCHLORIDE [Concomitant]

REACTIONS (2)
  - LARGE INTESTINE CARCINOMA [None]
  - LYMPHADENOPATHY [None]
